FAERS Safety Report 5384933-8 (Version None)
Quarter: 2007Q3

REPORT INFORMATION
  Report Type: 
  Country: None (occurrence: None)
  Receive Date: 20070709
  Receipt Date: 20070626
  Transmission Date: 20080115
  Serious: Yes (Other)
  Sender: FDA-Public Use
  Company Number: CC07-114

PATIENT

DRUGS (1)
  1. ALBUTEROL [Suspect]
     Indication: ASTHMA
     Dosage: 2 ACTUATIONS AS NEEDED;

REACTIONS (1)
  - DRUG INEFFECTIVE [None]
